FAERS Safety Report 18300765 (Version 1)
Quarter: 2020Q3

REPORT INFORMATION
  Report Type: Spontaneous
  Country: IL (occurrence: IL)
  Receive Date: 20200923
  Receipt Date: 20200923
  Transmission Date: 20201103
  Serious: Yes (Hospitalization)
  Sender: FDA-Public Use
  Company Number: IL-TEVA-2020-IL-1830386

PATIENT
  Age: 68 Year
  Sex: Female

DRUGS (1)
  1. FUSID (FUROSEMIDE) [Suspect]
     Active Substance: FUROSEMIDE
     Indication: POLYURIA
     Dosage: DOSE:40 .
     Route: 065

REACTIONS (1)
  - Renal failure [Recovering/Resolving]
